FAERS Safety Report 5799887-X (Version None)
Quarter: 2008Q3

REPORT INFORMATION
  Report Type: 
  Country: None (occurrence: None)
  Receive Date: 20080703
  Receipt Date: 20080630
  Transmission Date: 20090109
  Serious: Yes (Death, Hospitalization)
  Sender: FDA-Public Use
  Company Number: US-TEVA-173684USA

PATIENT
  Age: 36 Year
  Sex: Female

DRUGS (5)
  1. METHYLPREDNISOLONE SODIUM SUCCINATE FOR INJECTION, USP 125 MG BASE/VIA [Suspect]
  2. CYCLOPHOSPHAMIDE [Suspect]
     Dosage: ONE DOSE
     Route: 042
  3. BACTRIM [Suspect]
  4. ATOVAQUONE [Suspect]
  5. PREDNISONE 50MG TAB [Suspect]

REACTIONS (2)
  - HAEMORRHAGE INTRACRANIAL [None]
  - PNEUMOCYSTIS JIROVECI PNEUMONIA [None]
